FAERS Safety Report 6455874-X (Version None)
Quarter: 2009Q4

REPORT INFORMATION
  Report Type: 
  Country: None (occurrence: None)
  Receive Date: 20091119
  Receipt Date: 20091104
  Transmission Date: 20100525
  Serious: Yes (Life-Threatening)
  Sender: FDA-Public Use
  Company Number: GB-2009-2288

PATIENT
  Age: 64 Year
  Sex: Male

DRUGS (2)
  1. NAVELBINE [Suspect]
     Indication: NON-SMALL CELL LUNG CANCER
     Dosage: 30 MG/M2  IV
     Route: 042
  2. CARBOPLATIN [Suspect]

REACTIONS (3)
  - ADRENOCORTICAL INSUFFICIENCY ACUTE [None]
  - HAEMODIALYSIS [None]
  - RENAL FAILURE ACUTE [None]
